FAERS Safety Report 25879389 (Version 1)
Quarter: 2025Q4

REPORT INFORMATION
  Report Type: Report from Study
  Country: US (occurrence: US)
  Receive Date: 20251003
  Receipt Date: 20251003
  Transmission Date: 20260117
  Serious: Yes (Hospitalization)
  Sender: KINIKSA PHARMACEUTICALS
  Company Number: US-KINIKSA PHARMACEUTICALS LTD.-2025KPU002612

PATIENT
  Age: 34 Year
  Sex: Male

DRUGS (1)
  1. RILONACEPT [Suspect]
     Active Substance: RILONACEPT
     Indication: Pericarditis
     Dosage: UNK, QW
     Dates: start: 20210603, end: 20210705

REACTIONS (1)
  - Pneumonia [Unknown]

NARRATIVE: CASE EVENT DATE: 20210705
